FAERS Safety Report 26112359 (Version 1)
Quarter: 2025Q4

REPORT INFORMATION
  Report Type: Spontaneous
  Country: US (occurrence: US)
  Receive Date: 20251202
  Receipt Date: 20251202
  Transmission Date: 20260119
  Serious: No
  Sender: BAYER HEALTHCARE PHARMACEUTICALS INC.
  Company Number: US-BAYER-2025A156931

PATIENT
  Age: 20 Year
  Sex: Female

DRUGS (3)
  1. MIRENA [Suspect]
     Active Substance: LEVONORGESTREL
     Indication: Pelvic pain
     Dosage: 20?G/DAY
     Route: 015
     Dates: start: 202505
  2. MIRENA [Suspect]
     Active Substance: LEVONORGESTREL
     Indication: Perineal pain
  3. MIRENA [Suspect]
     Active Substance: LEVONORGESTREL
     Indication: Dysmenorrhoea

REACTIONS (2)
  - Nasopharyngitis [None]
  - Device use issue [None]
